FAERS Safety Report 8774797 (Version 1)
Quarter: 2012Q4

REPORT INFORMATION
  Report Type: 
  Country: US (occurrence: US)
  Receive Date: 20120910
  Receipt Date: 20120910
  Transmission Date: 20130627
  Serious: No
  Sender: FDA-Public Use
  Company Number: US-PFIZER INC-2012221127

PATIENT
  Age: 29 Year
  Sex: Female
  Weight: 56.69 kg

DRUGS (7)
  1. LYRICA [Suspect]
     Indication: FIBROMYALGIA
     Dosage: 75 mg, 2x/day
     Dates: end: 20120905
  2. MOTRIN [Suspect]
     Indication: FIBROMYALGIA
     Dosage: 600 mg, UNK
     Dates: start: 2005
  3. MOTRIN [Suspect]
     Dosage: 800 mg, UNK
  4. VICODIN [Suspect]
     Indication: FIBROMYALGIA
     Dosage: 5/500 mg, Unk
     Dates: start: 2005
  5. FLEXERIL [Suspect]
     Indication: FIBROMYALGIA
     Dosage: UNK
     Dates: start: 2005
  6. VICODIN ES [Suspect]
     Indication: FIBROMYALGIA
     Dosage: 7.5/750 mg, Unk
     Dates: start: 2005
  7. CYMBALTA [Concomitant]
     Indication: DEPRESSION
     Dosage: 60 mg, daily

REACTIONS (2)
  - Drug ineffective [Unknown]
  - Pain in extremity [Not Recovered/Not Resolved]
